FAERS Safety Report 4461612-2 (Version None)
Quarter: 2004Q3

REPORT INFORMATION
  Report Type: 
  Country: None (occurrence: None)
  Receive Date: 20040924
  Receipt Date: 20040924
  Transmission Date: 20050211
  Serious: Yes (Hospitalization)
  Sender: FDA-Public Use
  Company Number: None

PATIENT
  Age: 65 Year
  Sex: Male
  Weight: 87.2 kg

DRUGS (9)
  1. TAXOTERE [Suspect]
     Indication: BLADDER CANCER
     Dosage: 36 MG/M2, D1, 8, 15, IV
     Route: 042
     Dates: start: 20040802
  2. CAPECITABINE [Suspect]
     Indication: BLADDER CANCER
     Dosage: 1000 MG/M2, D5-18, PO
     Route: 048
     Dates: start: 20040807
  3. COMPAZINE [Concomitant]
  4. BENADRYL [Concomitant]
  5. DECADRON [Concomitant]
  6. DEXAMETHASONE [Concomitant]
  7. ARANESP [Concomitant]
  8. PREVACID [Concomitant]
  9. SENNA STOOL SOFTENER [Concomitant]

REACTIONS (1)
  - PULMONARY EMBOLISM [None]
